FAERS Safety Report 17191910 (Version 1)
Quarter: 2019Q4

REPORT INFORMATION
  Report Type: Spontaneous
  Country: US (occurrence: US)
  Receive Date: 20191223
  Receipt Date: 20191223
  Transmission Date: 20200122
  Serious: Yes (Other)
  Sender: FDA-Public Use
  Company Number: US-PFIZER INC-2019169588

PATIENT
  Age: 72 Year
  Sex: Female
  Weight: 61.23 kg

DRUGS (3)
  1. FOCUS SELECT MACULAR HEALTH WITH ZINC [Concomitant]
     Indication: MACULAR DEGENERATION
     Dosage: UNK
  2. RELPAX [Suspect]
     Active Substance: ELETRIPTAN HYDROBROMIDE
     Dosage: LATELY TAKING 2-3 TIMES A WEEK
  3. RELPAX [Suspect]
     Active Substance: ELETRIPTAN HYDROBROMIDE
     Indication: MIGRAINE
     Dosage: 40 MG, AS NEEDED
     Route: 048
     Dates: start: 2005

REACTIONS (1)
  - Drug dependence [Not Recovered/Not Resolved]
